FAERS Safety Report 7585411-8 (Version None)
Quarter: 2011Q2

REPORT INFORMATION
  Report Type: 
  Country: None (occurrence: None)
  Receive Date: 20110624
  Receipt Date: 20110613
  Transmission Date: 20111010
  Serious: Yes (Hospitalization)
  Sender: FDA-Public Use
  Company Number: KV201000098

PATIENT
  Age: 52 Year
  Sex: Female
  Weight: 64.4 kg

DRUGS (13)
  1. ZOFRAN  /00661201/ (OMEPRAZOLE) [Concomitant]
  2. PRILOSEC   /00661201/ 9OMEPRAZOLE) [Concomitant]
  3. OXYCONTIN [Concomitant]
  4. ASPIRIN [Concomitant]
  5. PREDNISONE [Concomitant]
  6. IBUPROFEN [Concomitant]
  7. MORPHINE SULFATE [Suspect]
     Indication: PAIN
     Dosage: 15 MG, BID, ORAL
     Route: 048
     Dates: start: 20080829, end: 20081116
  8. NAPROXEN [Concomitant]
  9. SOMA [Concomitant]
  10. LEXAPRO [Concomitant]
  11. PERCOCET [Concomitant]
  12. ATIVAN [Concomitant]
  13. VICODIN [Concomitant]

REACTIONS (34)
  - HEADACHE [None]
  - NAUSEA [None]
  - NASAL OEDEMA [None]
  - METABOLIC ALKALOSIS [None]
  - DYSTHYMIC DISORDER [None]
  - HYPERHIDROSIS [None]
  - HYPOTENSION [None]
  - MALNUTRITION [None]
  - PAIN [None]
  - ARRHYTHMIA [None]
  - MENTAL DISORDER [None]
  - CHEST DISCOMFORT [None]
  - LOSS OF CONSCIOUSNESS [None]
  - SINUS BRADYCARDIA [None]
  - NECK PAIN [None]
  - DEHYDRATION [None]
  - PALLOR [None]
  - CARDIO-RESPIRATORY ARREST [None]
  - HEAD INJURY [None]
  - EMOTIONAL DISORDER [None]
  - QUALITY OF LIFE DECREASED [None]
  - MUSCULOSKELETAL CHEST PAIN [None]
  - VOMITING [None]
  - BLOOD PRESSURE INCREASED [None]
  - FALL [None]
  - ADDISON'S DISEASE [None]
  - CHOLELITHIASIS [None]
  - EXCORIATION [None]
  - BACK PAIN [None]
  - CHOLECYSTITIS [None]
  - PERIPHERAL COLDNESS [None]
  - DYSPNOEA [None]
  - ANXIETY [None]
  - COSTOCHONDRITIS [None]
